FAERS Safety Report 23092905 (Version 1)
Quarter: 2023Q4

REPORT INFORMATION
  Report Type: Spontaneous
  Country: US (occurrence: US)
  Receive Date: 20231021
  Receipt Date: 20231021
  Transmission Date: 20240110
  Serious: Yes (Life-Threatening, Hospitalization, Other)
  Sender: FDA-Public Use
  Company Number: US-MLMSERVICE-20231004-4581443-1

PATIENT
  Age: 29 Year
  Sex: Male

DRUGS (5)
  1. TRAZODONE HYDROCHLORIDE [Interacting]
     Active Substance: TRAZODONE HYDROCHLORIDE
     Indication: Product used for unknown indication
     Dosage: CHRONIC USE
  2. RISPERIDONE [Interacting]
     Active Substance: RISPERIDONE
     Indication: Product used for unknown indication
     Dosage: CHRONIC USE
  3. CLONIDINE [Concomitant]
     Active Substance: CLONIDINE
  4. CLOBAZAM [Concomitant]
     Active Substance: CLOBAZAM
  5. LORAZEPAM [Concomitant]
     Active Substance: LORAZEPAM

REACTIONS (3)
  - Serotonin syndrome [Recovering/Resolving]
  - Rhabdomyolysis [Recovering/Resolving]
  - Drug interaction [Recovered/Resolved]
